FAERS Safety Report 9413230 (Version 1)
Quarter: 2013Q3

REPORT INFORMATION
  Report Type: Spontaneous
  Country: US (occurrence: None)
  Receive Date: 20130702
  Receipt Date: 20130702
  Transmission Date: 20140515
  Serious: Yes (Other)
  Sender: FDA-Public Use
  Company Number: 2013036342

PATIENT
  Age: 66 Year
  Sex: Female
  Weight: 64.41 kg

DRUGS (23)
  1. PRIVIGEN (IMMUNE GLOBULIN INTRAVENOUS (HUMAN) 10% LIQUID) [Suspect]
     Indication: IMMUNODEFICIENCY COMMON VARIABLE
     Dosage: 35 G 1X/3 WEEKS, VIA GRAVITY OVER 1-3 HRS IV (NOT OTHERWISE SPECIFIED)
  2. TEMAZEPAM (TEMAZEPAM) [Concomitant]
  3. KYTRIL (GRANISETRON HYDROCHLORIDE) [Concomitant]
  4. SYNTHROID (LEVOTHYROXINE SODIUM) [Concomitant]
  5. LIQUID B12 (CYANOCOBALAMIN) [Concomitant]
  6. CVS LORATADINE (LORATADINE) [Concomitant]
  7. CVS OMEPRAZOLE DR (OMEPRAZOLE) [Concomitant]
  8. ASPIRIN (ACETYLSALICYLIC ACID) [Concomitant]
  9. DEXTROSE 5% (GLUCOSE) [Concomitant]
  10. DIPHENHYDRAMINE (DIPHENHYDRAMINE) [Concomitant]
  11. DIPHENHYDRAMINE HYDROCHLORIDE (DIPHENHYDRAMINE HYDROCHLORIDE) [Concomitant]
  12. LIDOCAINE/PRILOCAINE (EMLA/00675501) [Concomitant]
  13. SODIUM CHLORIDE 0.95 (SODIUM CHLORIDE) [Concomitant]
  14. EPI-PEN (EPINEPHRINE HYDROCHLORIDE) [Concomitant]
  15. LIPITOR (ATORVASTATIN CALCIUM) [Concomitant]
  16. REQUIP (ROPINIROLE HYDROCHLORIDE) [Concomitant]
  17. COENZYME Q10 (UBIDECARENONE) [Concomitant]
  18. METOPROLOL TARTRATE 9METOPROLOL TARTRATE) [Concomitant]
  19. TYVASO (ALL OTHER THERAPEUTIC PRODUCTS) [Concomitant]
  20. VENLAFAXINE HCL (VENLAFAXINE HYDROCHLORIDE) [Concomitant]
  21. REVATIO (SILDENAFIL CITRATE) (UNKNOWN) (SILDENAFIL) [Concomitant]
  22. PRILOSEC [Concomitant]
  23. LEVOTHYROXINE (LEVOTHYROXINE) [Concomitant]

REACTIONS (1)
  - Tooth abscess [None]
